FAERS Safety Report 24570968 (Version 1)
Quarter: 2024Q4

REPORT INFORMATION
  Report Type: Spontaneous
  Country: CN (occurrence: CN)
  Receive Date: 20241101
  Receipt Date: 20241101
  Transmission Date: 20250115
  Serious: Yes (Disabling)
  Sender: ASTELLAS
  Company Number: CN-ASTELLAS-2024-AER-015668

PATIENT

DRUGS (1)
  1. CRESEMBA [Suspect]
     Active Substance: ISAVUCONAZONIUM SULFATE
     Indication: Aspergillus infection
     Dosage: UNK, UNKNOWN
     Route: 048
     Dates: start: 2024

REACTIONS (2)
  - Pain in extremity [Unknown]
  - Gait inability [Unknown]
